FAERS Safety Report 4410852-7 (Version None)
Quarter: 2004Q3

REPORT INFORMATION
  Report Type: 
  Country: None (occurrence: None)
  Receive Date: 20040726
  Receipt Date: 20040720
  Transmission Date: 20050211
  Serious: Yes (Hospitalization)
  Sender: FDA-Public Use
  Company Number: 04-189

PATIENT
  Age: 85 Year
  Sex: Female
  Weight: 70.3075 kg

DRUGS (7)
  1. HYDROXYUREA [Suspect]
     Indication: ESSENTIAL THROMBOCYTHAEMIA
     Dosage: 500MG CAPSULE 4 X DAY
     Dates: start: 20040328, end: 20040710
  2. ATENOLOL [Concomitant]
  3. COUMADIN [Concomitant]
  4. ASPIRIN [Concomitant]
  5. HZTZ [Concomitant]
  6. ALLOPURINOL [Concomitant]
  7. EVISTA [Concomitant]

REACTIONS (1)
  - GOUT [None]
